FAERS Safety Report 14776691 (Version 1)
Quarter: 2018Q2

REPORT INFORMATION
  Report Type: Spontaneous
  Country: FR (occurrence: FR)
  Receive Date: 20180419
  Receipt Date: 20180419
  Transmission Date: 20180711
  Serious: Yes (Hospitalization, Other)
  Sender: FDA-Public Use
  Company Number: FR-MERCK KGAA-2045997

PATIENT
  Age: 45 Year
  Sex: Female

DRUGS (1)
  1. NOVOTHYROX [Suspect]
     Active Substance: LEVOTHYROXINE SODIUM
     Indication: PRODUCT USED FOR UNKNOWN INDICATION

REACTIONS (21)
  - Myalgia [None]
  - Disturbance in attention [None]
  - Partner stress [None]
  - Palpitations [None]
  - Impaired driving ability [None]
  - Social avoidant behaviour [None]
  - Insomnia [None]
  - Feeling abnormal [None]
  - Headache [None]
  - Mood altered [None]
  - Impatience [None]
  - Asthenia [None]
  - Fatigue [None]
  - Loss of libido [None]
  - Dizziness [None]
  - Fear [None]
  - Vertigo [None]
  - Muscle spasms [None]
  - Irritability [None]
  - Cardiac disorder [None]
  - Mental impairment [None]

NARRATIVE: CASE EVENT DATE: 201708
